FAERS Safety Report 7666216 (Version 7)
Quarter: 2013Q1

REPORT INFORMATION
  Report Type: Spontaneous
  Country: US (occurrence: US)
  Receive Date: 20101112
  Receipt Date: 20130110
  Transmission Date: 20140127
  Serious: Yes (Hospitalization, Disabling, Other)
  Sender: FDA-Public Use
  Company Number: US-ABBOTT-10P-163-0684802-00

PATIENT
  Sex: Male
  Weight: 79.9 kg

DRUGS (8)
  1. HUMIRA 40 MG/0.8 ML PEN [Suspect]
     Indication: PSORIASIS
     Dosage: 80 MG ONCE
     Dates: start: 20100115, end: 20100115
  2. HUMIRA 40 MG/0.8 ML PEN [Suspect]
     Dates: end: 20100413
  3. DIOVAN [Concomitant]
     Indication: HYPERTENSION
  4. CHANTIX [Concomitant]
     Indication: PRODUCT USED FOR UNKNOWN INDICATION
  5. KEPPRA [Concomitant]
     Indication: CONVULSION
  6. PHOTOTHERAPY UVB [Concomitant]
     Indication: PRODUCT USED FOR UNKNOWN INDICATION
  7. STEROIDS [Concomitant]
     Indication: PRODUCT USED FOR UNKNOWN INDICATION
     Route: 061
  8. LASER [Concomitant]
     Indication: PRODUCT USED FOR UNKNOWN INDICATION

REACTIONS (12)
  - Progressive multifocal leukoencephalopathy [Unknown]
  - JC virus infection [Unknown]
  - Disorientation [Unknown]
  - Fatigue [Recovered/Resolved]
  - Convulsion [Unknown]
  - Depressed level of consciousness [Recovered/Resolved]
  - Unresponsive to stimuli [Recovered/Resolved]
  - Appendicitis [Recovered/Resolved]
  - Osteomyelitis [Recovered/Resolved]
  - Immune reconstitution inflammatory syndrome [Recovered/Resolved]
  - Hemiparesis [Unknown]
  - Cognitive disorder [Unknown]
